FAERS Safety Report 5585025-5 (Version None)
Quarter: 2008Q1

REPORT INFORMATION
  Report Type: 
  Country: None (occurrence: None)
  Receive Date: 20080109
  Receipt Date: 20071207
  Transmission Date: 20080703
  Serious: Yes (Hospitalization)
  Sender: FDA-Public Use
  Company Number: US-BAYER-200714119BWH

PATIENT
  Age: 64 Year
  Sex: Female

DRUGS (5)
  1. AVELOX [Suspect]
     Indication: ORAL INFECTION
     Dosage: TOTAL DAILY DOSE: 400 MG  UNIT DOSE: 400 MG
     Route: 048
     Dates: start: 20071016, end: 20071016
  2. BETA-BLOCKERS [Concomitant]
     Indication: BLOOD PRESSURE MANAGEMENT
  3. FLU SHOT [Concomitant]
     Indication: INFLUENZA IMMUNISATION
  4. DIOVAN [Concomitant]
  5. ATENOLOL [Concomitant]

REACTIONS (8)
  - ANAPHYLACTIC REACTION [None]
  - LOSS OF CONSCIOUSNESS [None]
  - PALMAR ERYTHEMA [None]
  - PLANTAR ERYTHEMA [None]
  - PRURITUS [None]
  - SWELLING FACE [None]
  - SWOLLEN TONGUE [None]
  - THROAT TIGHTNESS [None]
